FAERS Safety Report 13949106 (Version 1)
Quarter: 2017Q3

REPORT INFORMATION
  Report Type: Spontaneous
  Country: CA (occurrence: CA)
  Receive Date: 20170908
  Receipt Date: 20170908
  Transmission Date: 20171128
  Serious: Yes (Hospitalization, Other)
  Sender: FDA-Public Use
  Company Number: CA-APOTEX-2017AP018216

PATIENT
  Weight: 3 kg

DRUGS (1)
  1. APO ACETAMINOPHEN TAB 500MG [Suspect]
     Active Substance: ACETAMINOPHEN
     Indication: PRODUCT USED FOR UNKNOWN INDICATION
     Dosage: UNK
     Route: 064

REACTIONS (7)
  - Respiratory distress [Unknown]
  - Analgesic drug level increased [Recovered/Resolved]
  - Foetal exposure during pregnancy [Unknown]
  - Maternal drugs affecting foetus [None]
  - Neonatal respiratory distress syndrome [None]
  - International normalised ratio increased [Unknown]
  - PO2 decreased [Unknown]
